FAERS Safety Report 20887522 (Version 1)
Quarter: 2022Q2

REPORT INFORMATION
  Report Type: Spontaneous
  Country: DE (occurrence: DE)
  Receive Date: 20220528
  Receipt Date: 20220528
  Transmission Date: 20220721
  Serious: Yes (Hospitalization, Congenital Anomaly)
  Sender: FDA-Public Use
  Company Number: DE-NOVARTISPH-NVSC2022DE118437

PATIENT
  Age: 1 Day
  Sex: Male
  Weight: 4.31 kg

DRUGS (7)
  1. AMITRIPTYLINE [Suspect]
     Active Substance: AMITRIPTYLINE
     Indication: Foetal exposure during pregnancy
     Dosage: MATERNAL DOSE- 75MG QD
     Route: 064
     Dates: start: 20200913, end: 20210627
  2. MEPERIDINE [Concomitant]
     Active Substance: MEPERIDINE
     Indication: Foetal exposure during pregnancy
     Dosage: MATERNAL DOSE- (1000 [MG/D ])
     Route: 064
     Dates: start: 20210319, end: 20210522
  3. MOMETASONE [Concomitant]
     Active Substance: MOMETASONE
     Indication: Foetal exposure during pregnancy
     Dosage: UNK
     Route: 064
  4. ACETAMINOPHEN [Concomitant]
     Active Substance: ACETAMINOPHEN
     Indication: Foetal exposure during pregnancy
     Dosage: MATERNAL DOSE- (1000 [MG/D (BIS 500, BEI BEDARF) ])
     Route: 064
  5. BOOSTRIX [Concomitant]
     Active Substance: TETANUS TOXOID, REDUCED DIPHTHERIA TOXOID AND ACELLULAR PERTUSSIS VACCINE, ADSORBED ANTIGENS
     Indication: Foetal exposure during pregnancy
     Dosage: UNK
     Route: 064
     Dates: start: 20210504, end: 20210504
  6. LARYNGOMEDIN N [Concomitant]
     Indication: Foetal exposure during pregnancy
     Dosage: UNK
     Route: 064
  7. MICROLAX [Concomitant]
     Indication: Foetal exposure during pregnancy
     Dosage: UNK
     Route: 064

REACTIONS (2)
  - Cleft palate [Recovered/Resolved with Sequelae]
  - Foetal exposure during pregnancy [Unknown]

NARRATIVE: CASE EVENT DATE: 20210601
